FAERS Safety Report 8169523-6 (Version None)
Quarter: 2012Q1

REPORT INFORMATION
  Report Type: 
  Country: None (occurrence: None)
  Receive Date: 20120228
  Receipt Date: 20120221
  Transmission Date: 20120608
  Serious: Yes (Hospitalization, Other)
  Sender: FDA-Public Use
  Company Number: US-BAYER-2011-075130

PATIENT
  Age: 35 Year
  Sex: Female
  Weight: 65 kg

DRUGS (4)
  1. YAZ [Suspect]
  2. FISH OIL [Concomitant]
     Dosage: UNK
     Dates: start: 20091229
  3. YAZ [Suspect]
     Indication: PREMENSTRUAL SYNDROME
     Dosage: UNK
     Dates: start: 20050101, end: 20100101
  4. IBUPROFEN (ADVIL) [Concomitant]
     Dosage: UNK
     Dates: start: 20091229

REACTIONS (5)
  - GALLBLADDER DISORDER [None]
  - EMOTIONAL DISTRESS [None]
  - PAIN [None]
  - CHOLELITHIASIS [None]
  - INJURY [None]
